FAERS Safety Report 10004668 (Version 2)
Quarter: 2014Q1

REPORT INFORMATION
  Report Type: Spontaneous
  Country: US (occurrence: US)
  Receive Date: 20140312
  Receipt Date: 20140312
  Transmission Date: 20141002
  Serious: Yes (Hospitalization)
  Sender: FDA-Public Use
  Company Number: US-GLAXOSMITHKLINE-A0742942A

PATIENT
  Sex: Male
  Weight: 106.8 kg

DRUGS (5)
  1. AVANDIA [Suspect]
     Indication: TYPE 2 DIABETES MELLITUS
     Dosage: 4MG TWICE PER DAY
     Route: 048
     Dates: start: 199906, end: 200709
  2. AVANDAMET [Suspect]
     Indication: TYPE 2 DIABETES MELLITUS
     Route: 048
     Dates: start: 200210, end: 200701
  3. GLYCEROLTRINITRATE [Concomitant]
     Dates: start: 199811
  4. ZOCOR [Concomitant]
     Dates: start: 199809
  5. ZOLOFT [Concomitant]
     Dates: start: 1999

REACTIONS (5)
  - Coronary artery occlusion [Unknown]
  - Transient ischaemic attack [Unknown]
  - Cardiac failure congestive [Unknown]
  - Coronary artery disease [Unknown]
  - Aortic aneurysm [Unknown]
